FAERS Safety Report 7621249-0 (Version None)
Quarter: 2011Q3

REPORT INFORMATION
  Report Type: 
  Country: None (occurrence: None)
  Receive Date: 20110719
  Receipt Date: 20110711
  Transmission Date: 20111222
  Serious: Yes (Hospitalization)
  Sender: FDA-Public Use
  Company Number: AT-CEPHALON-2011003177

PATIENT
  Sex: Female
  Weight: 82 kg

DRUGS (4)
  1. MABTHERA [Suspect]
     Route: 042
     Dates: start: 20100723, end: 20100910
  2. MABTHERA [Suspect]
     Route: 042
     Dates: start: 20110126, end: 20110223
  3. BENDAMUSTINE HCL [Suspect]
     Route: 042
     Dates: start: 20100729, end: 20100910
  4. MABTHERA [Suspect]
     Route: 042
     Dates: start: 20110101, end: 20110407

REACTIONS (1)
  - PANCYTOPENIA [None]
